FAERS Safety Report 8607880-4 (Version None)
Quarter: 2012Q3

REPORT INFORMATION
  Report Type: 
  Country: None (occurrence: None)
  Receive Date: 20120821
  Receipt Date: 20120820
  Transmission Date: 20120928
  Serious: Yes (Hospitalization)
  Sender: FDA-Public Use
  Company Number: PHHO2010AU16803

PATIENT
  Sex: Male
  Weight: 103 kg

DRUGS (17)
  1. BASILIXIMAB [Concomitant]
     Indication: PROPHYLAXIS AGAINST TRANSPLANT REJECTION
     Dosage: 20 MG, QD
     Route: 042
     Dates: start: 20081202, end: 20081208
  2. NEORAL [Suspect]
     Dosage: 500 MG, UNK
     Route: 048
     Dates: start: 20081216, end: 20081217
  3. NEORAL [Suspect]
     Dosage: 500 MG, UNK
     Route: 048
     Dates: start: 20081224, end: 20090202
  4. METHYLPREDNISOLONE [Concomitant]
     Indication: PROPHYLAXIS AGAINST TRANSPLANT REJECTION
     Dosage: 500 MG, QD
     Route: 042
     Dates: start: 20081202, end: 20081202
  5. NEORAL [Suspect]
     Dosage: 550 MG, UNK
     Route: 048
     Dates: start: 20081223, end: 20081223
  6. NEORAL [Suspect]
     Dosage: 900 MG, UNK
     Route: 048
     Dates: start: 20081203, end: 20081203
  7. NEORAL [Suspect]
     Dosage: 300 MG, UNK
     Route: 048
     Dates: start: 20081218, end: 20081218
  8. NO TREATMENT RECEIVED [Suspect]
     Indication: RENAL TRANSPLANT
     Dosage: NO TREATMENT
  9. NEORAL [Suspect]
     Dosage: 750 MG, UNK
     Route: 048
     Dates: start: 20081208, end: 20081208
  10. NEORAL [Suspect]
     Indication: RENAL TRANSPLANT
     Dosage: 1000 MG, UNK
     Route: 048
     Dates: start: 20081202, end: 20081202
  11. NEORAL [Suspect]
     Dosage: 800 MG, UNK
     Route: 048
     Dates: start: 20081204, end: 20081207
  12. NEORAL [Suspect]
     Dosage: 700 MG, UNK
     Route: 048
     Dates: start: 20081209, end: 20081215
  13. NEORAL [Suspect]
     Dosage: 600 MG, UNK
     Route: 048
     Dates: start: 20081219, end: 20081222
  14. MYFORTIC [Suspect]
     Indication: RENAL TRANSPLANT
     Dosage: 720 MG, BID
     Route: 048
     Dates: start: 20081202
  15. PREDNISONE [Concomitant]
     Indication: PROPHYLAXIS AGAINST TRANSPLANT REJECTION
     Dosage: 30 MG, QD
     Route: 048
     Dates: start: 20081204, end: 20081208
  16. METHYLPREDNISOLONE [Concomitant]
     Dosage: 250 MG, QD
     Route: 042
     Dates: start: 20081203, end: 20081203
  17. NEORAL [Suspect]
     Dosage: 500 MG, UNK
     Route: 048
     Dates: start: 20090203

REACTIONS (7)
  - INFECTION [None]
  - CYST [None]
  - HAEMATOMA [None]
  - CONCOMITANT DISEASE PROGRESSION [None]
  - DEVICE RELATED INFECTION [None]
  - STAPHYLOCOCCAL INFECTION [None]
  - ARTHRITIS [None]
